FAERS Safety Report 6561213-6 (Version None)
Quarter: 2010Q1

REPORT INFORMATION
  Report Type: 
  Country: None (occurrence: None)
  Receive Date: 20100130
  Receipt Date: 20091011
  Transmission Date: 20100710
  Serious: No
  Sender: FDA-Public Use
  Company Number: US-ABBOTT-09P-163-0602147-00

PATIENT
  Sex: Female

DRUGS (2)
  1. HUMIRA [Suspect]
     Indication: CROHN'S DISEASE
     Dosage: DAY 1
     Dates: start: 20091007
  2. PERCOCET [Concomitant]
     Indication: PAIN
     Dosage: 2 TO 3 TIMES DAILY

REACTIONS (4)
  - ANXIETY [None]
  - FATIGUE [None]
  - FORMICATION [None]
  - NAUSEA [None]
